FAERS Safety Report 17199021 (Version 1)
Quarter: 2019Q4

REPORT INFORMATION
  Report Type: Report from Study
  Country: US (occurrence: US)
  Receive Date: 20191225
  Receipt Date: 20191225
  Transmission Date: 20200122
  Serious: No
  Sender: FDA-Public Use
  Company Number: PHHY2018US139392

PATIENT
  Age: 40 Year
  Sex: Male

DRUGS (1)
  1. GILENYA [Suspect]
     Active Substance: FINGOLIMOD HYDROCHLORIDE
     Indication: MULTIPLE SCLEROSIS
     Dosage: UNK UNK, QD
     Route: 048

REACTIONS (14)
  - Blood cholesterol decreased [Unknown]
  - Alanine aminotransferase increased [Unknown]
  - Carpal tunnel syndrome [Unknown]
  - Balance disorder [Unknown]
  - Blood pressure increased [Unknown]
  - Central nervous system lesion [Unknown]
  - Blood glucose increased [Unknown]
  - Gait disturbance [Unknown]
  - Temperature intolerance [Unknown]
  - Neutrophil count increased [Unknown]
  - Polyuria [Unknown]
  - Lymphocyte count increased [Unknown]
  - Bladder disorder [Unknown]
  - Pain [Unknown]

NARRATIVE: CASE EVENT DATE: 20171025
